FAERS Safety Report 7788244-2 (Version None)
Quarter: 2011Q3

REPORT INFORMATION
  Report Type: 
  Country: None (occurrence: None)
  Receive Date: 20110930
  Receipt Date: 20110919
  Transmission Date: 20111222
  Serious: Yes (Hospitalization, Other)
  Sender: FDA-Public Use
  Company Number: US-ELI_LILLY_AND_COMPANY-US201108004881

PATIENT
  Sex: Female
  Weight: 73.016 kg

DRUGS (11)
  1. METOPROLOL TARTRATE [Concomitant]
     Dosage: 100 MG, QD
  2. FORTEO [Suspect]
     Indication: OSTEOPOROSIS
     Dosage: 20 UG, QD
     Dates: start: 20101001
  3. OCUVITE LUTEIN [Concomitant]
  4. CALCIUM + VITAMIN D [Concomitant]
     Dosage: 600 MG, BID
  5. COMADIN [Concomitant]
     Dosage: 5 MG, UNK
  6. HYDROCODONE [Concomitant]
  7. VITAMIN D [Concomitant]
     Dosage: 2000 UL, BID
  8. AMLODIPINE BESYLATE [Concomitant]
     Dosage: 10 MG, QD
  9. ARICEPT [Concomitant]
     Dosage: 10 MG, QD
  10. SIMVASTATIN [Concomitant]
     Dosage: 40 MG, QD
  11. ENSURE                             /06184901/ [Concomitant]

REACTIONS (6)
  - GAIT DISTURBANCE [None]
  - DRUG DOSE OMISSION [None]
  - NEPHROLITHIASIS [None]
  - FALL [None]
  - HIP FRACTURE [None]
  - HERNIA [None]
